FAERS Safety Report 6803981-1 (Version None)
Quarter: 2010Q2

REPORT INFORMATION
  Report Type: 
  Country: None (occurrence: None)
  Receive Date: 20100628
  Receipt Date: 20060819
  Transmission Date: 20101027
  Serious: No
  Sender: FDA-Public Use
  Company Number: US-PFIZER INC-2006069656

PATIENT
  Sex: Male
  Weight: 96.62 kg

DRUGS (2)
  1. SUTENT [Suspect]
     Indication: RENAL CELL CARCINOMA
     Dosage: CYCLIC DAILY 4WEEKS ON 2WEEKS OFF
     Route: 048
     Dates: start: 20060401
  2. CARDIAC THERAPY [Concomitant]

REACTIONS (2)
  - DIARRHOEA [None]
  - WEIGHT DECREASED [None]
